FAERS Safety Report 15476662 (Version 9)
Quarter: 2019Q3

REPORT INFORMATION
  Report Type: Spontaneous
  Country: FR (occurrence: FR)
  Receive Date: 20181009
  Receipt Date: 20190912
  Transmission Date: 20191004
  Serious: Yes (Life-Threatening, Other)
  Sender: FDA-Public Use
  Company Number: FR-AUROBINDO-AUR-APL-2018-048727

PATIENT
  Age: 69 Year
  Sex: Male
  Weight: 66 kg

DRUGS (29)
  1. VALACYCLOVIR [Suspect]
     Active Substance: VALACYCLOVIR HYDROCHLORIDE
     Indication: INFECTION PROPHYLAXIS
     Dosage: 500 MILLIGRAM, ONCE A DAY
     Route: 048
     Dates: end: 201806
  2. FOLIC ACID. [Suspect]
     Active Substance: FOLIC ACID
     Indication: PRODUCT USED FOR UNKNOWN INDICATION
     Dosage: UNK
     Route: 065
  3. PARACETAMOL [Suspect]
     Active Substance: ACETAMINOPHEN
     Indication: PRODUCT USED FOR UNKNOWN INDICATION
     Dosage: 3 DOSAGE FORM, ONCE A DAY
     Route: 065
  4. LACTULOSE. [Suspect]
     Active Substance: LACTULOSE
     Indication: PRODUCT USED FOR UNKNOWN INDICATION
     Dosage: 2 DOSAGE FORM, ONCE A DAY, 2 DF, DAILY
     Route: 065
  5. BACTRIM [Suspect]
     Active Substance: SULFAMETHOXAZOLE\TRIMETHOPRIM
     Indication: PNEUMOCYSTIS JIROVECII PNEUMONIA
     Dosage: 1 DOSAGE FORM, ONCE A DAY, 1 DOSAGE FORM, QD
     Route: 048
     Dates: start: 201806
  6. BACTRIM [Suspect]
     Active Substance: SULFAMETHOXAZOLE\TRIMETHOPRIM
     Dosage: UNK
  7. LANSOPRAZOLE. [Suspect]
     Active Substance: LANSOPRAZOLE
     Indication: PRODUCT USED FOR UNKNOWN INDICATION
     Dosage: 1 DOSAGE FORM, ONCE A DAY, 1 DF, DAILY
     Route: 065
  8. PREGABALIN. [Suspect]
     Active Substance: PREGABALIN
     Indication: PRODUCT USED FOR UNKNOWN INDICATION
     Dosage: 2 DOSAGE FORM, ONCE A DAY
     Route: 065
  9. ELIQUIS [Suspect]
     Active Substance: APIXABAN
     Dosage: 1 (UNSPECIFIED UNITS) ONCE A DAY
     Route: 065
  10. ELIQUIS [Suspect]
     Active Substance: APIXABAN
     Dosage: 1 DOSAGE FORM, ONCE A DAY
     Route: 065
  11. AMOXICILLIN. [Suspect]
     Active Substance: AMOXICILLIN
     Indication: INFECTION
     Dosage: 1000 MILLIGRAM, ONCE A DAY, 1000 MILLIGRAM, QD
     Route: 048
     Dates: end: 201806
  12. TRAMADOL. [Suspect]
     Active Substance: TRAMADOL
     Indication: PAIN
     Dosage: 400 MILLIGRAM, ONCE A DAY, 400 MG, 1X/DAY
     Route: 048
     Dates: start: 201604, end: 201806
  13. ZOPICLONE [Suspect]
     Active Substance: ZOPICLONE
     Indication: PRODUCT USED FOR UNKNOWN INDICATION
     Dosage: 1 DOSAGE FORM, ONCE A DAY, 1 DF, DAILY
     Route: 065
  14. BACTRIM [Suspect]
     Active Substance: SULFAMETHOXAZOLE\TRIMETHOPRIM
     Dosage: 6 DOSAGE FORM, ONCE A DAY, (2 DF, 3X/DAYC(TID) )
     Route: 065
     Dates: start: 201806
  15. ELIQUIS [Suspect]
     Active Substance: APIXABAN
     Indication: PRODUCT USED FOR UNKNOWN INDICATION
     Dosage: 2 DOSAGE FORM, ONCE A DAY, 1 DF, BID
     Route: 065
  16. BACLOFEN. [Suspect]
     Active Substance: BACLOFEN
     Dosage: 6 DOSAGE FORM, ONCE A DAY, 2 DOSAGE FORM, TID
     Route: 065
  17. PARACETAMOL [Suspect]
     Active Substance: ACETAMINOPHEN
     Dosage: 1 (UNSPECIFIED UNITS) ONCE A DAY
     Route: 065
  18. PREGABALIN. [Suspect]
     Active Substance: PREGABALIN
     Dosage: 1 (UNSPECIFIED UNITS) ONCE A DAY
     Route: 065
  19. APIXABAN [Suspect]
     Active Substance: APIXABAN
     Dosage: 2 DOSAGE FORM, ONCE A DAY
     Route: 065
  20. PARACETAMOL [Suspect]
     Active Substance: ACETAMINOPHEN
     Dosage: 1 DOSAGE FORM, ONCE A DAY
     Route: 065
  21. PREGABALIN. [Suspect]
     Active Substance: PREGABALIN
     Dosage: 1 DOSAGE FORM, ONCE A DAY
     Route: 065
  22. TRAMADOL. [Suspect]
     Active Substance: TRAMADOL
     Dosage: 1 (UNSPECIFIED UNITS) ONCE A DAY
     Route: 048
  23. TRAMADOL. [Suspect]
     Active Substance: TRAMADOL
     Dosage: 200 MILLIGRAM, ONCE A DAY
     Route: 048
     Dates: end: 201806
  24. BACLOFEN. [Suspect]
     Active Substance: BACLOFEN
     Dosage: 1 DOSAGE FORM, ONCE A DAY
     Route: 065
  25. APIXABAN [Suspect]
     Active Substance: APIXABAN
     Indication: PRODUCT USED FOR UNKNOWN INDICATION
     Dosage: 1 DOSAGE FORM, TWO TIMES A DAY
     Route: 065
  26. NEOFORDEX [Suspect]
     Active Substance: DEXAMETHASONE ACETATE
     Indication: PRODUCT USED FOR UNKNOWN INDICATION
     Dosage: 1 DOSAGE FORM, EVERY WEEK
     Route: 065
  27. BACLOFEN. [Suspect]
     Active Substance: BACLOFEN
     Indication: PRODUCT USED FOR UNKNOWN INDICATION
     Dosage: 2 DOSAGE FORM, 3 TIMES A DAY
     Route: 065
  28. BACLOFEN. [Suspect]
     Active Substance: BACLOFEN
     Dosage: 1 (UNSPECIFIED UNITS), ONCE A DAY
     Route: 065
  29. VESICARE [Suspect]
     Active Substance: SOLIFENACIN SUCCINATE
     Indication: URINARY INCONTINENCE
     Dosage: 10 MILLIGRAM, ONCE A DAY, 10 MILLIGRAM, QD
     Route: 048

REACTIONS (8)
  - Overdose [Recovered/Resolved]
  - Blood pressure decreased [Unknown]
  - Off label use [Unknown]
  - Confusional state [Recovered/Resolved]
  - Coma [Recovered/Resolved]
  - Epilepsy [Recovered/Resolved]
  - Drug intolerance [Unknown]
  - Somnolence [Recovered/Resolved]

NARRATIVE: CASE EVENT DATE: 20180607
